FAERS Safety Report 10828010 (Version 1)
Quarter: 2015Q1

REPORT INFORMATION
  Report Type: Report from Study
  Country: US (occurrence: US)
  Receive Date: 20150219
  Receipt Date: 20150219
  Transmission Date: 20150721
  Serious: No
  Sender: FDA-Public Use
  Company Number: US-ABBVIE-14K-163-1321260-00

PATIENT
  Sex: Male

DRUGS (1)
  1. HUMIRA [Suspect]
     Active Substance: ADALIMUMAB
     Indication: PSORIASIS
     Route: 065
     Dates: start: 20130312

REACTIONS (5)
  - Breath odour [Recovered/Resolved]
  - Psoriasis [Unknown]
  - Tooth infection [Recovering/Resolving]
  - Arthralgia [Unknown]
  - Gingivitis [Recovering/Resolving]
